FAERS Safety Report 19810942 (Version 1)
Quarter: 2021Q3

REPORT INFORMATION
  Report Type: Spontaneous
  Country: US (occurrence: US)
  Receive Date: 20210909
  Receipt Date: 20210909
  Transmission Date: 20211014
  Serious: No
  Sender: FDA-Public Use
  Company Number: US-BAYER-2021-196658

PATIENT
  Sex: Male

DRUGS (2)
  1. TYLENOL [Concomitant]
     Active Substance: ACETAMINOPHEN
     Dosage: 2 DF
  2. ALEVE [Suspect]
     Active Substance: NAPROXEN SODIUM
     Indication: SURGERY
     Dosage: 4 DF
     Route: 065

REACTIONS (2)
  - Product use in unapproved indication [Unknown]
  - Extra dose administered [Unknown]
